FAERS Safety Report 21469316 (Version 1)
Quarter: 2022Q4

REPORT INFORMATION
  Report Type: Report from Study
  Country: US (occurrence: US)
  Receive Date: 20221018
  Receipt Date: 20221018
  Transmission Date: 20230113
  Serious: Yes (Other)
  Sender: FDA-Public Use
  Company Number: US-UCBSA-2022056155

PATIENT
  Sex: Female
  Weight: 72 kg

DRUGS (1)
  1. ROTIGOTINE [Suspect]
     Active Substance: ROTIGOTINE
     Indication: Restless legs syndrome
     Dosage: 8 MILLIGRAM, ONCE DAILY (QD)
     Dates: start: 20220915

REACTIONS (3)
  - Restless legs syndrome [Not Recovered/Not Resolved]
  - Therapy interrupted [Unknown]
  - Overdose [Unknown]
